FAERS Safety Report 18823901 (Version 3)
Quarter: 2021Q1

REPORT INFORMATION
  Report Type: Spontaneous
  Country: US (occurrence: US)
  Receive Date: 20210201
  Receipt Date: 20210219
  Transmission Date: 20210419
  Serious: Yes (Other)
  Sender: FDA-Public Use
  Company Number: US-009507513-2101USA013020

PATIENT
  Sex: Female
  Weight: 91.16 kg

DRUGS (2)
  1. ZANTAC [Concomitant]
     Active Substance: RANITIDINE HYDROCHLORIDE
     Dosage: UNK
  2. NEXPLANON [Suspect]
     Active Substance: ETONOGESTREL
     Indication: CONTRACEPTION
     Dosage: 1 ROD, EVERY 3 YEARS, LEFT ARM
     Route: 059
     Dates: start: 20180404, end: 20201226

REACTIONS (5)
  - Device issue [Recovered/Resolved]
  - Device dislocation [Recovered/Resolved]
  - Tachycardia [Unknown]
  - Complication associated with device [Recovered/Resolved]
  - Implant site pain [Unknown]
